FAERS Safety Report 6752089-2 (Version None)
Quarter: 2010Q2

REPORT INFORMATION
  Report Type: 
  Country: None (occurrence: None)
  Receive Date: 20100602
  Receipt Date: 20100521
  Transmission Date: 20101027
  Serious: Yes (Other)
  Sender: FDA-Public Use
  Company Number: US-PFIZER INC-2010064343

PATIENT
  Sex: Male
  Weight: 78 kg

DRUGS (1)
  1. DILANTIN [Suspect]
     Indication: CONVULSION
     Dosage: 100 MG, 4X/DAY
     Route: 048

REACTIONS (3)
  - BALANCE DISORDER [None]
  - DRUG TOXICITY [None]
  - NERVOUS SYSTEM DISORDER [None]
